FAERS Safety Report 6819549-7 (Version None)
Quarter: 2010Q2

REPORT INFORMATION
  Report Type: 
  Country: None (occurrence: None)
  Receive Date: 20100630
  Receipt Date: 20100625
  Transmission Date: 20101027
  Serious: Yes (Life-Threatening, Hospitalization)
  Sender: FDA-Public Use
  Company Number: 1000014608

PATIENT
  Age: 73 Year
  Sex: Female
  Weight: 66.2252 kg

DRUGS (9)
  1. MEMANTINE HCL [Suspect]
     Indication: DEMENTIA ALZHEIMER'S TYPE
     Dosage: 20 MG (10 MG, 2 IN 1 D)
     Dates: start: 20091005
  2. ARICEPT [Concomitant]
  3. SEROQUEL [Concomitant]
  4. SERTRALINE HCL [Concomitant]
  5. TRAZODONE HYDROCHLORIDE [Concomitant]
  6. AMLODIPINE BESYLATE AND BENAZEPRIL HCL [Concomitant]
  7. ASPIRIN [Concomitant]
  8. ADVIL LIQUI-GELS [Concomitant]
  9. TYLENOL-500 [Concomitant]

REACTIONS (2)
  - SMALL INTESTINAL OBSTRUCTION [None]
  - URINARY TRACT INFECTION [None]
